FAERS Safety Report 12338092 (Version 6)
Quarter: 2016Q3

REPORT INFORMATION
  Report Type: Spontaneous
  Country: US (occurrence: US)
  Receive Date: 20160505
  Receipt Date: 20160714
  Transmission Date: 20161109
  Serious: Yes (Hospitalization, Other)
  Sender: FDA-Public Use
  Company Number: US-CELGENEUS-USA-2016050254

PATIENT
  Age: 68 Year
  Sex: Male
  Weight: 79.45 kg

DRUGS (2)
  1. REVLIMID [Suspect]
     Active Substance: LENALIDOMIDE
     Indication: PLASMA CELL MYELOMA
     Route: 048
     Dates: start: 201603, end: 201604
  2. REVLIMID [Suspect]
     Active Substance: LENALIDOMIDE
     Route: 048
     Dates: start: 20160502

REACTIONS (8)
  - Atrial fibrillation [Unknown]
  - Heart rate irregular [Recovered/Resolved]
  - Diarrhoea [Recovered/Resolved]
  - Heart rate increased [Recovered/Resolved]
  - Asthenia [Recovered/Resolved]
  - Thrombosis [Unknown]
  - Decreased appetite [Unknown]
  - Hypotension [Recovered/Resolved]

NARRATIVE: CASE EVENT DATE: 20160411
